FAERS Safety Report 6860988-6 (Version None)
Quarter: 2010Q3

REPORT INFORMATION
  Report Type: 
  Country: None (occurrence: None)
  Receive Date: 20100720
  Receipt Date: 20100707
  Transmission Date: 20110219
  Serious: Yes (Other)
  Sender: FDA-Public Use
  Company Number: AU-GENENTECH-304133

PATIENT
  Sex: Female

DRUGS (1)
  1. LUCENTIS [Suspect]
     Indication: PRODUCT USED FOR UNKNOWN INDICATION
     Dosage: UNK
     Route: 031
     Dates: start: 20071201

REACTIONS (4)
  - INJECTION SITE PAIN [None]
  - LACRIMATION INCREASED [None]
  - OCULAR DISCOMFORT [None]
  - PHOTOPSIA [None]
